FAERS Safety Report 10411429 (Version 3)
Quarter: 2014Q3

REPORT INFORMATION
  Report Type: Spontaneous
  Country: JP (occurrence: JP)
  Receive Date: 20140827
  Receipt Date: 20140930
  Transmission Date: 20150326
  Serious: Yes (Hospitalization, Other)
  Sender: FDA-Public Use
  Company Number: JP-ROCHE-1442325

PATIENT
  Age: 66 Year
  Sex: Male
  Weight: 51 kg

DRUGS (4)
  1. AVASTIN [Suspect]
     Active Substance: BEVACIZUMAB
     Indication: LUNG ADENOCARCINOMA METASTATIC
     Route: 041
     Dates: start: 20130613, end: 20130613
  2. PARAPLATIN [Concomitant]
     Active Substance: CARBOPLATIN
     Indication: LUNG ADENOCARCINOMA METASTATIC
     Dosage: AUC5
     Route: 041
     Dates: start: 20130613, end: 20130613
  3. ALIMTA [Concomitant]
     Active Substance: PEMETREXED DISODIUM
     Indication: LUNG ADENOCARCINOMA METASTATIC
     Route: 041
     Dates: start: 20130613, end: 20130613
  4. ZOMETA [Concomitant]
     Active Substance: ZOLEDRONIC ACID
     Route: 065
     Dates: start: 20130617

REACTIONS (3)
  - Gastric ulcer haemorrhage [Recovering/Resolving]
  - Oesophageal carcinoma [Unknown]
  - Pyrexia [Unknown]

NARRATIVE: CASE EVENT DATE: 20130618
